FAERS Safety Report 8840824 (Version 5)
Quarter: 2013Q3

REPORT INFORMATION
  Report Type: Report from Study
  Country: JP (occurrence: JP)
  Receive Date: 20121015
  Receipt Date: 20130701
  Transmission Date: 20140515
  Serious: Yes (Other)
  Sender: FDA-Public Use
  Company Number: JP-ROCHE-770874

PATIENT
  Sex: 0

DRUGS (5)
  1. BEVACIZUMAB [Suspect]
     Indication: COLORECTAL CANCER METASTATIC
     Route: 042
  2. TEGAFUR [Suspect]
     Indication: COLORECTAL CANCER METASTATIC
     Route: 048
  3. OTERACIL POTASSIUM [Suspect]
     Indication: COLORECTAL CANCER METASTATIC
     Route: 048
  4. GIMERACIL [Suspect]
     Indication: COLORECTAL CANCER METASTATIC
     Route: 048
  5. IRINOTECAN [Suspect]
     Indication: COLORECTAL CANCER METASTATIC
     Route: 042

REACTIONS (9)
  - Neutropenia [Unknown]
  - Diarrhoea [Unknown]
  - Decreased appetite [Unknown]
  - Stomatitis [Unknown]
  - Hypertension [Unknown]
  - Anaemia [Unknown]
  - Leukopenia [Unknown]
  - Fatigue [Unknown]
  - Hyperbilirubinaemia [Unknown]
